FAERS Safety Report 6139828-9 (Version None)
Quarter: 2009Q2

REPORT INFORMATION
  Report Type: 
  Country: None (occurrence: None)
  Receive Date: 20090401
  Receipt Date: 20090327
  Transmission Date: 20091009
  Serious: Yes (Death)
  Sender: FDA-Public Use
  Company Number: JP-AVENTIS-200910092JP

PATIENT
  Age: 87 Year
  Sex: Female
  Weight: 32.7 kg

DRUGS (5)
  1. LANTUS [Suspect]
     Indication: DIABETES MELLITUS
     Dosage: DOSE: 6 UNITS
     Route: 058
     Dates: start: 20081221, end: 20081223
  2. SEIBULE [Concomitant]
     Indication: DIABETES MELLITUS
     Dosage: DOSE: 50 MG
     Route: 048
     Dates: start: 20070423, end: 20081223
  3. TAKAMIGIN [Concomitant]
     Indication: GASTRITIS
     Dosage: DOSE: 400MG
     Route: 048
     Dates: start: 20070521, end: 20081223
  4. MAGNESIUM OXIDE [Concomitant]
     Indication: CONSTIPATION
     Dosage: DOSE: 2 TABLET
     Route: 048
     Dates: start: 20070507, end: 20081223
  5. HUMALOG [Concomitant]
     Indication: DIABETES MELLITUS
     Dates: start: 20070409, end: 20081220

REACTIONS (1)
  - DEATH [None]
